FAERS Safety Report 19460559 (Version 4)
Quarter: 2021Q4

REPORT INFORMATION
  Report Type: Spontaneous
  Country: JP (occurrence: JP)
  Receive Date: 20210625
  Receipt Date: 20211201
  Transmission Date: 20220303
  Serious: Yes (Hospitalization, Other)
  Sender: FDA-Public Use
  Company Number: JP-BRISTOL-MYERS SQUIBB COMPANY-BMS-2021-060847

PATIENT
  Age: 8 Decade
  Sex: Male
  Weight: 48.1 kg

DRUGS (6)
  1. OPDIVO [Suspect]
     Active Substance: NIVOLUMAB
     Indication: Gastric cancer
     Dosage: 240 MILLIGRAM
     Route: 041
     Dates: start: 20200528
  2. OPDIVO [Suspect]
     Active Substance: NIVOLUMAB
     Dosage: 240 MILLIGRAM
     Route: 041
     Dates: start: 202010
  3. ALLOID G [Concomitant]
     Active Substance: SODIUM ALGINATE
     Indication: Gastric cancer
     Dosage: 20 MILLILITER, Q8H
     Route: 048
     Dates: start: 201811
  4. LANSOPRAZOLE [Concomitant]
     Active Substance: LANSOPRAZOLE
     Indication: Gastric cancer
     Dosage: 15 MILLIGRAM, QD
     Route: 048
     Dates: start: 201811
  5. RIKKUNSHITO [ATRACTYLODES SPP. RHIZOME;CITRUS AURANTIUM PEEL;GLYCYRRHI [Concomitant]
     Indication: Gastric cancer
     Dosage: 25 GRAM, Q8H
     Route: 048
     Dates: start: 201811
  6. SULTAMICILLIN TOSYLATE [Concomitant]
     Active Substance: SULTAMICILLIN TOSYLATE
     Indication: Prophylaxis
     Dosage: 375 MG, EVERYDAY
     Route: 048
     Dates: start: 20200930, end: 20201002

REACTIONS (2)
  - Herpes zoster [Recovered/Resolved]
  - Adrenal insufficiency [Recovered/Resolved]

NARRATIVE: CASE EVENT DATE: 20201002
